FAERS Safety Report 4827251-6 (Version None)
Quarter: 2005Q4

REPORT INFORMATION
  Report Type: 
  Country: None (occurrence: None)
  Receive Date: 20051114
  Receipt Date: 20050624
  Transmission Date: 20060501
  Serious: Yes (Hospitalization)
  Sender: FDA-Public Use
  Company Number: FR-GILEAD-2005-0008441

PATIENT
  Age: 64 Year
  Sex: Male
  Weight: 68 kg

DRUGS (12)
  1. EMTRIVA [Suspect]
     Indication: HIV INFECTION
     Route: 048
     Dates: start: 20050315
  2. VIREAD [Suspect]
     Indication: HIV INFECTION
     Route: 048
     Dates: start: 20050315, end: 20050525
  3. NORVIR [Concomitant]
     Indication: HIV INFECTION
     Route: 048
     Dates: start: 20050115
  4. REYATAZ [Concomitant]
     Route: 048
     Dates: start: 20050115
  5. LASILIX [Concomitant]
     Indication: MYOCARDIAL INFARCTION
  6. ALDACTONE [Concomitant]
     Indication: MYOCARDIAL INFARCTION
  7. LIPANTHYL [Concomitant]
     Indication: MYOCARDIAL INFARCTION
  8. APROVEL [Concomitant]
     Indication: MYOCARDIAL INFARCTION
  9. DIFFU K [Concomitant]
     Indication: MYOCARDIAL INFARCTION
  10. PREVISCAN [Concomitant]
     Indication: MYOCARDIAL INFARCTION
  11. VINCRISTINE [Concomitant]
     Indication: KAPOSI'S SARCOMA
  12. BLEOMYCIN [Concomitant]
     Indication: KAPOSI'S SARCOMA

REACTIONS (2)
  - FANCONI SYNDROME ACQUIRED [None]
  - RENAL FAILURE ACUTE [None]
